FAERS Safety Report 21364011 (Version 1)
Quarter: 2022Q3

REPORT INFORMATION
  Report Type: Report from Study
  Country: US (occurrence: US)
  Receive Date: 20220922
  Receipt Date: 20220922
  Transmission Date: 20221027
  Serious: Yes (Hospitalization)
  Sender: FDA-Public Use
  Company Number: US-UCBSA-2022055575

PATIENT
  Sex: Male

DRUGS (1)
  1. FENFLURAMINE HYDROCHLORIDE [Suspect]
     Active Substance: FENFLURAMINE HYDROCHLORIDE
     Indication: Product used for unknown indication
     Dosage: 5.9 MILLILITER, 2X/DAY (BID)

REACTIONS (6)
  - Pain [Not Recovered/Not Resolved]
  - Behaviour disorder [Not Recovered/Not Resolved]
  - Hyperhidrosis [Not Recovered/Not Resolved]
  - Constipation [Not Recovered/Not Resolved]
  - Urinary retention [Not Recovered/Not Resolved]
  - Alopecia [Not Recovered/Not Resolved]

NARRATIVE: CASE EVENT DATE: 20220101
